FAERS Safety Report 6542970-1 (Version None)
Quarter: 2010Q1

REPORT INFORMATION
  Report Type: 
  Country: None (occurrence: None)
  Receive Date: 20100120
  Receipt Date: 20100111
  Transmission Date: 20100710
  Serious: Yes (Hospitalization)
  Sender: FDA-Public Use
  Company Number: US-ROCHE-628537

PATIENT
  Sex: Male
  Weight: 4.1 kg

DRUGS (6)
  1. ISOTRETINOIN [Suspect]
     Indication: DRUG USE FOR UNKNOWN INDICATION
     Dosage: STRENGTH: 20 MG STOP DATE REPORTED AS 2006
     Route: 064
     Dates: start: 20060313
  2. ISOTRETINOIN [Suspect]
     Dosage: STOP DATE REPORTED AS 2007
     Route: 064
     Dates: start: 20070725
  3. ISOTRETINOIN [Suspect]
     Dosage: STRENGTH:20 MG/MORNING+40 MG/NIGHT.
     Route: 064
     Dates: start: 20090320, end: 20090417
  4. AMNESTEEM [Suspect]
     Indication: DRUG USE FOR UNKNOWN INDICATION
     Dosage: THE PATIENT WAS DISPENSED AMNESTEEM 40 MG CAPSULE ON 25JUL07 AND 20 MG ON 13APR07
     Route: 064
  5. SOTRET [Suspect]
     Indication: DRUG USE FOR UNKNOWN INDICATION
     Dosage: THE PATIENT WAS DISPENSED SOTRET 30 MG CAPSULE ON 13 APRIL 2007. STOP DATE REPORTED AS 2007
     Route: 064
  6. ORTHO TRI-CYCLEN [Concomitant]
     Dosage: FORM: PILL., MIGHT HAVE MISSED ONE OR TWO PILLS.

REACTIONS (2)
  - JAUNDICE [None]
  - LIVE BIRTH [None]
